FAERS Safety Report 6188517-3 (Version None)
Quarter: 2009Q2

REPORT INFORMATION
  Report Type: 
  Country: None (occurrence: None)
  Receive Date: 20090513
  Receipt Date: 20081210
  Transmission Date: 20091009
  Serious: Yes (Hospitalization, Other)
  Sender: FDA-Public Use
  Company Number: DE-ALEXION-A200800024

PATIENT

DRUGS (31)
  1. SOLIRIS [Suspect]
     Indication: PAROXYSMAL NOCTURNAL HAEMOGLOBINURIA
     Dosage: 600 MG, SINGLE
     Route: 042
     Dates: start: 20070723, end: 20070723
  2. SOLIRIS [Suspect]
     Dosage: 600 MG, SINGLE
     Route: 042
     Dates: start: 20070730, end: 20070730
  3. SOLIRIS [Suspect]
     Dosage: 600 MG, SINGLE
     Route: 042
     Dates: start: 20070806, end: 20070806
  4. SOLIRIS [Suspect]
     Dosage: 600 MG, SINGLE
     Route: 042
     Dates: start: 20070813, end: 20070813
  5. SOLIRIS [Suspect]
     Dosage: 900 MG, SINGLE
     Route: 042
     Dates: start: 20070820, end: 20070820
  6. SOLIRIS [Suspect]
     Dosage: 900 MG, SINGLE
     Route: 042
     Dates: start: 20070903, end: 20070903
  7. SOLIRIS [Suspect]
     Dosage: 900 MG, SINGLE
     Route: 042
     Dates: start: 20070917, end: 20070917
  8. SOLIRIS [Suspect]
     Dosage: 900 MG, SINGLE
     Route: 042
     Dates: start: 20071001, end: 20071001
  9. SOLIRIS [Suspect]
     Dosage: 900 MG, SINGLE
     Route: 042
     Dates: start: 20071015, end: 20071015
  10. SOLIRIS [Suspect]
     Dosage: 900 MG, SINGLE
     Route: 042
     Dates: start: 20071029, end: 20071029
  11. SOLIRIS [Suspect]
     Dosage: 900 MG, SINGLE
     Route: 042
     Dates: start: 20071112, end: 20071112
  12. SOLIRIS [Suspect]
     Dosage: 900 MG, SINGLE
     Route: 042
     Dates: start: 20071126, end: 20071126
  13. SOLIRIS [Suspect]
     Dosage: 900 MG, SINGLE
     Route: 042
     Dates: start: 20071210, end: 20071210
  14. SOLIRIS [Suspect]
     Dosage: 900 MG, SINGLE
     Route: 042
     Dates: start: 20071227, end: 20071227
  15. SOLIRIS [Suspect]
     Dosage: 900 MG, SINGLE
     Route: 042
     Dates: start: 20080110, end: 20080110
  16. SOLIRIS [Suspect]
     Dosage: 600 MG, QWX4WKS
     Route: 042
     Dates: start: 20080520, end: 20080610
  17. SOLIRIS [Suspect]
     Dosage: 900 MG, Q2WKS
     Route: 042
     Dates: start: 20080616
  18. PREDNISOLON                        /00016201/ [Concomitant]
     Dosage: 100 MG, QD
     Dates: start: 20070628, end: 20070702
  19. PREDNISOLON                        /00016201/ [Concomitant]
     Dosage: 20 MG, UNK
     Dates: start: 20070703
  20. HYDROCHLOROTHIAZIDE [Concomitant]
     Dosage: 12.5 MG, UNK
  21. MAGNEROT                           /00950201/ [Concomitant]
  22. MARCUMAR [Concomitant]
  23. FOLSAN [Concomitant]
     Dosage: 5 MG, UNK
  24. KALINOR-BRAUSETABLETTEN [Concomitant]
     Dosage: 40 UNK, UNK
  25. PANTOPRAZOLE SODIUM [Concomitant]
     Dosage: 40 MG, UNK
  26. ENALAPRIL MALEATE [Concomitant]
     Dosage: 5 MG, UNK
  27. CALCILAC [Concomitant]
  28. TRAMADOL [Concomitant]
     Dosage: 100 MG, UNK
  29. MOVICOL                            /01053601/ [Concomitant]
  30. FOSAMAC [Concomitant]
  31. SEVREDOL [Concomitant]
     Dosage: 5 MG, UNK

REACTIONS (2)
  - DRUG INEFFECTIVE [None]
  - HAEMOLYSIS [None]
